FAERS Safety Report 9158000 (Version 1)
Quarter: 2013Q1

REPORT INFORMATION
  Report Type: Report from Study
  Country: JP (occurrence: JP)
  Receive Date: 20130312
  Receipt Date: 20130312
  Transmission Date: 20140127
  Serious: Yes (Death, Other)
  Sender: FDA-Public Use
  Company Number: JP-CELGENEUS-087-21880-11060446

PATIENT
  Age: 60 Year
  Sex: Female

DRUGS (17)
  1. REVLIMID [Suspect]
     Indication: PLASMA CELL MYELOMA
     Dosage: 25 MILLIGRAM
     Route: 048
     Dates: start: 20100901, end: 20100921
  2. REVLIMID [Suspect]
     Dosage: 5 MILLIGRAM
     Route: 048
     Dates: start: 20101117, end: 20101213
  3. REVLIMID [Suspect]
     Dosage: 5 MILLIGRAM
     Route: 048
     Dates: start: 20101214, end: 20110110
  4. REVLIMID [Suspect]
     Dosage: 5 MILLIGRAM
     Route: 048
     Dates: start: 20110111, end: 20110207
  5. REVLIMID [Suspect]
     Dosage: 5 MILLIGRAM
     Route: 048
     Dates: start: 20110208, end: 20110307
  6. REVLIMID [Suspect]
     Dosage: 5 MILLIGRAM
     Route: 048
     Dates: start: 20110310, end: 20110323
  7. REVLIMID [Suspect]
     Dosage: 10 MILLIGRAM
     Route: 048
     Dates: start: 20110420
  8. SEFIROM [Suspect]
     Indication: URINARY TRACT INFECTION
     Dosage: 1 GRAM
     Route: 041
     Dates: start: 20110308, end: 20110315
  9. MEROPEN [Suspect]
     Indication: URINARY TRACT INFECTION
     Dosage: .5 GRAM
     Route: 041
     Dates: start: 20110316, end: 20110328
  10. PREDONINE [Concomitant]
     Indication: PLASMA CELL MYELOMA
     Dosage: 5 MILLIGRAM
     Route: 048
     Dates: start: 20100901, end: 20100921
  11. PREDONINE [Concomitant]
     Dosage: 5 MILLIGRAM
     Route: 048
     Dates: start: 20101117, end: 20101213
  12. PREDONINE [Concomitant]
     Dosage: 5 MILLIGRAM
     Route: 048
     Dates: start: 20101214, end: 20110110
  13. PREDONINE [Concomitant]
     Dosage: 5 MILLIGRAM
     Route: 048
     Dates: start: 20110420
  14. ZYLORIC [Concomitant]
     Indication: PRODUCT USED FOR UNKNOWN INDICATION
     Dosage: 100 MILLIGRAM
     Route: 048
     Dates: start: 20110420
  15. AMOBAN [Concomitant]
     Indication: PRODUCT USED FOR UNKNOWN INDICATION
     Dosage: 7.5 MILLIGRAM
     Route: 048
     Dates: start: 20110420
  16. LOXONIN [Concomitant]
     Indication: PRODUCT USED FOR UNKNOWN INDICATION
     Dosage: 60 MILLIGRAM
     Route: 048
     Dates: start: 20110420
  17. GLAKAY [Concomitant]
     Indication: PRODUCT USED FOR UNKNOWN INDICATION
     Dosage: 45 MILLIGRAM
     Route: 048
     Dates: start: 20110420

REACTIONS (6)
  - Death [Fatal]
  - Diabetes mellitus [Unknown]
  - Blood creatinine increased [Not Recovered/Not Resolved]
  - Insomnia [Unknown]
  - Urinary tract infection [Recovered/Resolved]
  - Back pain [Unknown]
